FAERS Safety Report 9887538 (Version 2)
Quarter: 2014Q1

REPORT INFORMATION
  Report Type: Spontaneous
  Country: FI (occurrence: FI)
  Receive Date: 20140211
  Receipt Date: 20140221
  Transmission Date: 20141002
  Serious: Yes (Hospitalization, Other)
  Sender: FDA-Public Use
  Company Number: FI-AMGEN-FINSP2014008291

PATIENT
  Age: 81 Year
  Sex: Female

DRUGS (12)
  1. XGEVA [Suspect]
     Indication: METASTASES TO BONE
     Dosage: 120 MG, UNK
     Route: 058
     Dates: start: 20140107
  2. XELODA [Concomitant]
     Indication: NEOPLASM MALIGNANT
     Dosage: UNK
     Dates: start: 20131219
  3. CALCICHEW D3 FORTE [Concomitant]
     Dosage: UNK
     Dates: start: 20140107
  4. COHEMIN [Concomitant]
     Dosage: UNK UNK, Q3MO
  5. LOGIMAX [Concomitant]
     Indication: HYPERTENSION
     Dosage: 10/95
  6. SIMVASTATIN [Concomitant]
     Dosage: 40 MG, QD
  7. GRANISETRON [Concomitant]
     Indication: NAUSEA
  8. PRIMPERAN [Concomitant]
     Dosage: 10 MG, AS NECESSARY
  9. PANADOL FORTE [Concomitant]
     Dosage: 1 G, UNK
  10. OXYCODONE [Concomitant]
  11. LEVOLAC [Concomitant]
  12. IMOVANE [Concomitant]
     Dosage: 7.5 MG, UNK

REACTIONS (3)
  - Paraesthesia [Recovered/Resolved]
  - Electrocardiogram QT interval abnormal [Unknown]
  - Hypocalcaemia [Recovered/Resolved]
